FAERS Safety Report 8331911-2 (Version None)
Quarter: 2012Q2

REPORT INFORMATION
  Report Type: 
  Country: None (occurrence: None)
  Receive Date: 20120502
  Receipt Date: 20120423
  Transmission Date: 20120825
  Serious: No
  Sender: FDA-Public Use
  Company Number: US-AMGEN-USASP2012025441

PATIENT
  Sex: Female

DRUGS (5)
  1. VENTOLIN HFA [Concomitant]
     Dosage: UNK MUG, UNK
  2. FOLIC ACID [Concomitant]
     Dosage: UNK MG, UNK
  3. ENBREL [Suspect]
     Indication: RHEUMATOID ARTHRITIS
     Dosage: 50 MG, UNK
  4. METHOTREXATE [Concomitant]
     Dosage: UNK MG, UNK
  5. ADVAIR DISKUS 100/50 [Concomitant]
     Dosage: UNK

REACTIONS (1)
  - INJECTION SITE PAIN [None]
